FAERS Safety Report 16841340 (Version 1)
Quarter: 2019Q3

REPORT INFORMATION
  Report Type: Spontaneous
  Country: GB (occurrence: GB)
  Receive Date: 20190923
  Receipt Date: 20190923
  Transmission Date: 20191005
  Serious: Yes (Death)
  Sender: FDA-Public Use
  Company Number: PHHY2019GB220463

PATIENT
  Age: 61 Year
  Sex: Male

DRUGS (7)
  1. CICLOSPORIN [Suspect]
     Active Substance: CYCLOSPORINE
     Indication: LUNG TRANSPLANT
     Dosage: 8 MG/KG, QD (4-8 MG/KG, QD)
     Route: 065
  2. CICLOSPORIN [Suspect]
     Active Substance: CYCLOSPORINE
     Indication: IMMUNOSUPPRESSANT DRUG THERAPY
  3. AZATHIOPRINE. [Suspect]
     Active Substance: AZATHIOPRINE
     Indication: IMMUNOSUPPRESSANT DRUG THERAPY
  4. AZATHIOPRINE. [Suspect]
     Active Substance: AZATHIOPRINE
     Indication: LUNG TRANSPLANT
     Dosage: 1-2 MG/KG, QD
     Route: 048
  5. CYTOTECT CP [Suspect]
     Active Substance: HUMAN CYTOMEGALOVIRUS IMMUNE GLOBULIN
     Indication: CYTOMEGALOVIRUS INFECTION
     Dosage: 2-3 ML/KG, EXPRESSED IN LOG10 COPIES/ML: 4.6?5.2 QW
     Route: 065
  6. GANCICLOVIR. [Suspect]
     Active Substance: GANCICLOVIR
     Indication: CYTOMEGALOVIRUS INFECTION
     Dosage: 5 MG/KG, BID
     Route: 042
  7. METHYLPREDNISOLONE. [Suspect]
     Active Substance: METHYLPREDNISOLONE
     Indication: TRANSPLANT REJECTION
     Route: 042

REACTIONS (2)
  - Transplant rejection [Fatal]
  - Cytomegalovirus infection [Fatal]
